FAERS Safety Report 11096195 (Version 1)
Quarter: 2015Q2

REPORT INFORMATION
  Report Type: Spontaneous
  Country: US (occurrence: None)
  Receive Date: 20150506
  Receipt Date: 20150506
  Transmission Date: 20150821
  Serious: Yes (Other)
  Sender: FDA-Public Use
  Company Number: None

PATIENT
  Age: 32 Year
  Sex: Female
  Weight: 113.4 kg

DRUGS (9)
  1. IMMURAN [Concomitant]
  2. REMICADE [Concomitant]
     Active Substance: INFLIXIMAB
  3. VITAMIN B12 [Suspect]
     Active Substance: CYANOCOBALAMIN
  4. ASACOL [Concomitant]
     Active Substance: MESALAMINE
  5. ZYRTEK [Suspect]
     Active Substance: CETIRIZINE HYDROCHLORIDE
  6. REMICADE [Suspect]
     Active Substance: INFLIXIMAB
     Indication: COLITIS ULCERATIVE
     Dosage: 1200 MG, EVERY 8 WEEKS, INTO A VEIN
     Route: 058
  7. PRENATAL VITAMIN [Suspect]
     Active Substance: VITAMINS
  8. VITAMIN D WITH CALCIUM [Concomitant]
     Active Substance: CALCIUM\CHOLECALCIFEROL
  9. FOLIC ACID. [Suspect]
     Active Substance: FOLIC ACID

REACTIONS (6)
  - Heart rate increased [None]
  - Discomfort [None]
  - Head discomfort [None]
  - Infusion site pain [None]
  - Blood pressure increased [None]
  - Headache [None]

NARRATIVE: CASE EVENT DATE: 20150427
